FAERS Safety Report 6383515-9 (Version None)
Quarter: 2009Q4

REPORT INFORMATION
  Report Type: 
  Country: None (occurrence: None)
  Receive Date: 20091001
  Receipt Date: 20090922
  Transmission Date: 20100525
  Serious: Yes (Other)
  Sender: FDA-Public Use
  Company Number: RU-ROCHE-656498

PATIENT
  Sex: Female

DRUGS (1)
  1. BONIVA [Suspect]
     Indication: OSTEOPOROSIS
     Dosage: LAST INTAKE OF BONVIVA ON 09 SEPTEMBER 2009.
     Route: 048
     Dates: start: 20080501

REACTIONS (3)
  - DEVICE FAILURE [None]
  - GINGIVAL INFECTION [None]
  - PAIN IN JAW [None]
